FAERS Safety Report 15566300 (Version 1)
Quarter: 2018Q4

REPORT INFORMATION
  Report Type: Spontaneous
  Country: FR (occurrence: FR)
  Receive Date: 20181030
  Receipt Date: 20181030
  Transmission Date: 20190205
  Serious: Yes (Other)
  Sender: FDA-Public Use
  Company Number: FR-ASTRAZENECA-2018SF41919

PATIENT
  Age: 86 Year
  Sex: Female

DRUGS (2)
  1. OXYGEN. [Concomitant]
     Active Substance: OXYGEN
  2. INEXIUM [Suspect]
     Active Substance: ESOMEPRAZOLE
     Indication: GASTROOESOPHAGEAL REFLUX DISEASE
     Route: 048
     Dates: start: 2016

REACTIONS (17)
  - Toothache [Unknown]
  - Peripheral swelling [Unknown]
  - Off label use [Unknown]
  - Skin irritation [Unknown]
  - Cardiac disorder [Unknown]
  - Blood potassium decreased [Unknown]
  - Eye swelling [Unknown]
  - Abdominal pain [Unknown]
  - Generalised erythema [Unknown]
  - Somnolence [Unknown]
  - Pulmonary embolism [Unknown]
  - Skin plaque [Unknown]
  - Weight decreased [Unknown]
  - Ulcer [Unknown]
  - Alopecia [Unknown]
  - Eye haemorrhage [Unknown]
  - Malaise [Unknown]

NARRATIVE: CASE EVENT DATE: 2016
